FAERS Safety Report 5672349-6 (Version None)
Quarter: 2008Q2

REPORT INFORMATION
  Report Type: 
  Country: None (occurrence: None)
  Receive Date: 20080219
  Receipt Date: 20071210
  Transmission Date: 20081010
  Serious: No
  Sender: FDA-Public Use
  Company Number: TPA2007A02285

PATIENT
  Age: 47 Year
  Sex: Female
  Weight: 73.9363 kg

DRUGS (5)
  1. ROZEREM [Suspect]
     Indication: INSOMNIA
     Dosage: 8 MG, QHS, PER ORAL ; 8 MG, QHS, PER ORAL
     Route: 048
     Dates: start: 20070901, end: 20070901
  2. ROZEREM [Suspect]
     Indication: INSOMNIA
     Dosage: 8 MG, QHS, PER ORAL ; 8 MG, QHS, PER ORAL
     Route: 048
     Dates: start: 20061201
  3. SYNTHROID [Concomitant]
  4. ATIVAN [Concomitant]
  5. MULTIVITAMIN [Concomitant]

REACTIONS (4)
  - DIZZINESS [None]
  - INITIAL INSOMNIA [None]
  - INSOMNIA [None]
  - VISION BLURRED [None]
